FAERS Safety Report 7666817-5 (Version None)
Quarter: 2011Q3

REPORT INFORMATION
  Report Type: 
  Country: None (occurrence: None)
  Receive Date: 20110806
  Receipt Date: 20110531
  Transmission Date: 20111222
  Serious: No
  Sender: FDA-Public Use
  Company Number: US-ABBOTT-11P-163-0730020-00

PATIENT
  Sex: Female
  Weight: 126.21 kg

DRUGS (10)
  1. NIASPAN [Suspect]
     Indication: BLOOD CHOLESTEROL INCREASED
     Dosage: 2000 MG DAILY DOSE
     Dates: start: 20110201, end: 20110201
  2. ASTEPRO [Concomitant]
     Indication: HYPERSENSITIVITY
  3. AMITIZA [Concomitant]
     Indication: CONSTIPATION
  4. ADVAIR DISKUS 100/50 [Concomitant]
     Indication: CHRONIC OBSTRUCTIVE PULMONARY DISEASE
  5. FISH OIL [Concomitant]
     Indication: SUPPLEMENTATION THERAPY
  6. MIRALAX [Concomitant]
     Indication: IRRITABLE BOWEL SYNDROME
  7. SPIRIVA [Concomitant]
     Indication: CHRONIC OBSTRUCTIVE PULMONARY DISEASE
  8. AMITIZA [Concomitant]
     Indication: IRRITABLE BOWEL SYNDROME
  9. FLONASE [Concomitant]
     Indication: HYPERSENSITIVITY
  10. MIRALAX [Concomitant]
     Indication: CONSTIPATION

REACTIONS (2)
  - PRURITUS [None]
  - FLUSHING [None]
